FAERS Safety Report 19085007 (Version 1)
Quarter: 2021Q2

REPORT INFORMATION
  Report Type: Report from Study
  Country: US (occurrence: US)
  Receive Date: 20210401
  Receipt Date: 20210401
  Transmission Date: 20210717
  Serious: No
  Sender: FDA-Public Use
  Company Number: US-RETROPHIN, INC.-2020RTN00059

PATIENT
  Age: 10 Month
  Sex: Female

DRUGS (4)
  1. VITAMIN K [Concomitant]
     Active Substance: PHYTONADIONE
     Dosage: 2.5 MG, 1X/DAY
  2. CHOLBAM [Suspect]
     Active Substance: CHOLIC ACID
     Indication: COAGULOPATHY
  3. CHOLBAM [Suspect]
     Active Substance: CHOLIC ACID
     Indication: CEREBROHEPATORENAL SYNDROME
     Dosage: 100 MG, 1X/DAY IN AM
     Route: 048
     Dates: start: 20200515
  4. CHOLBAM [Suspect]
     Active Substance: CHOLIC ACID
     Indication: HEPATIC ENZYME INCREASED
     Dosage: 50 MG, 1X/DAY IN PM
     Route: 048
     Dates: start: 20200515

REACTIONS (2)
  - Diarrhoea [Recovered/Resolved]
  - Rash [Recovered/Resolved]

NARRATIVE: CASE EVENT DATE: 202005
